FAERS Safety Report 25341263 (Version 3)
Quarter: 2025Q2

REPORT INFORMATION
  Report Type: Report from Study
  Country: CO (occurrence: CO)
  Receive Date: 20250521
  Receipt Date: 20250620
  Transmission Date: 20250717
  Serious: Yes (Death, Hospitalization)
  Sender: ASTELLAS
  Company Number: CO-ASTELLAS-2025-AER-025994

PATIENT
  Age: 51 Year
  Sex: Female
  Weight: 50 kg

DRUGS (6)
  1. TACROLIMUS [Suspect]
     Active Substance: TACROLIMUS
     Indication: Liver transplant
     Dosage: 3 MG (3 MG X 1 CAPSULE)
     Route: 048
     Dates: start: 20200712
  2. PREDNISOLONE [Concomitant]
     Active Substance: PREDNISOLONE
     Indication: Product used for unknown indication
     Route: 065
  3. OMEPRAZOLE [Concomitant]
     Active Substance: OMEPRAZOLE
     Indication: Product used for unknown indication
     Route: 065
  4. MAGNESIUM [Concomitant]
     Active Substance: MAGNESIUM
     Indication: Product used for unknown indication
     Route: 065
  5. CALCIUM [Concomitant]
     Active Substance: CALCIUM
     Indication: Product used for unknown indication
     Route: 065
  6. ASPIRIN ALUMINUM [Concomitant]
     Active Substance: ASPIRIN ALUMINUM
     Indication: Product used for unknown indication
     Route: 065

REACTIONS (6)
  - Death [Fatal]
  - Asthenia [Not Recovered/Not Resolved]
  - Aphasia [Not Recovered/Not Resolved]
  - Dyspnoea [Not Recovered/Not Resolved]
  - Immunodeficiency [Not Recovered/Not Resolved]
  - Mobility decreased [Not Recovered/Not Resolved]

NARRATIVE: CASE EVENT DATE: 20250419
